FAERS Safety Report 7866846-2 (Version None)
Quarter: 2011Q4

REPORT INFORMATION
  Report Type: 
  Country: None (occurrence: None)
  Receive Date: 20111026
  Receipt Date: 20111012
  Transmission Date: 20120403
  Serious: Yes (Hospitalization, Other)
  Sender: FDA-Public Use
  Company Number: 2011MA013068

PATIENT
  Age: 48 Year
  Sex: Male
  Weight: 57 kg

DRUGS (4)
  1. ISONIAZID [Suspect]
     Indication: PULMONARY TUBERCULOSIS
     Dosage: 300 MG;QD
  2. PYRAZINAMIDE [Suspect]
     Indication: PULMONARY TUBERCULOSIS
     Dosage: 1500 MG;QD
  3. RIFAMPIN [Suspect]
     Indication: PULMONARY TUBERCULOSIS
     Dosage: 600 MG;QD
  4. STREPTOMYCIN [Suspect]
     Indication: PULMONARY TUBERCULOSIS
     Dosage: 1000 MG;QD

REACTIONS (5)
  - SKIN TOXICITY [None]
  - CIRCULATORY COLLAPSE [None]
  - REFUSAL OF TREATMENT BY PATIENT [None]
  - FALL [None]
  - PEMPHIGOID [None]
